FAERS Safety Report 19232446 (Version 3)
Quarter: 2021Q3

REPORT INFORMATION
  Report Type: Report from Study
  Country: None (occurrence: US)
  Receive Date: 20210507
  Receipt Date: 20210706
  Transmission Date: 20211014
  Serious: Yes (Hospitalization)
  Sender: FDA-Public Use
  Company Number: US-ABBVIE-21K-163-3891435-00

PATIENT
  Sex: Female
  Weight: 61.29 kg

DRUGS (1)
  1. VENCLEXTA [Suspect]
     Active Substance: VENETOCLAX
     Indication: ACUTE MYELOID LEUKAEMIA
     Route: 048
     Dates: start: 20210403

REACTIONS (4)
  - White blood cell count decreased [Unknown]
  - Platelet count decreased [Recovering/Resolving]
  - Neutropenia [Unknown]
  - Pyrexia [Unknown]

NARRATIVE: CASE EVENT DATE: 2021
